FAERS Safety Report 20077415 (Version 1)
Quarter: 2021Q4

REPORT INFORMATION
  Report Type: Spontaneous
  Country: GB (occurrence: GB)
  Receive Date: 20211116
  Receipt Date: 20211116
  Transmission Date: 20220303
  Serious: Yes (Other)
  Sender: FDA-Public Use
  Company Number: GB-INSUD PHARMA-2111GB02657

PATIENT

DRUGS (7)
  1. OMEPRAZOLE [Suspect]
     Active Substance: OMEPRAZOLE
     Indication: Dyspepsia
     Dosage: 40 MILLIGRAM, UNKNOWN
     Route: 065
  2. NITISINONE [Suspect]
     Active Substance: NITISINONE
     Indication: Alkaptonuria
     Dosage: 10 MILLIGRAM, QD
     Route: 065
  3. PIROXICAM [Concomitant]
     Active Substance: PIROXICAM
     Dosage: 100 MILLIGRAM
  4. POTASSIUM CITRATE [Concomitant]
     Active Substance: POTASSIUM CITRATE
  5. BISOPROLOL [Concomitant]
     Active Substance: BISOPROLOL
     Dosage: 2.5 MILLIGRAM
  6. ASPIRIN [Concomitant]
     Active Substance: ASPIRIN
     Dosage: 80 MILLIGRAM
  7. ROSUVASTATIN [Concomitant]
     Active Substance: ROSUVASTATIN
     Dosage: 10 MILLIGRAM

REACTIONS (1)
  - Vitiligo [Not Recovered/Not Resolved]
